FAERS Safety Report 10354497 (Version 1)
Quarter: 2014Q3

REPORT INFORMATION
  Report Type: Spontaneous
  Country: JP (occurrence: JP)
  Receive Date: 20140731
  Receipt Date: 20140731
  Transmission Date: 20150326
  Serious: Yes (Other)
  Sender: FDA-Public Use
  Company Number: JP-TEVA-498405ISR

PATIENT
  Age: 7 Year
  Sex: Male

DRUGS (5)
  1. CISPLATIN. [Suspect]
     Active Substance: CISPLATIN
     Indication: OSTEOSARCOMA
  2. DOXORUBICIN [Concomitant]
     Active Substance: DOXORUBICIN
  3. IFOSFAMIDE. [Concomitant]
     Active Substance: IFOSFAMIDE
     Dosage: 36 G/M2 TOTAL
  4. PIRARUBICIN [Concomitant]
     Active Substance: PIRARUBICIN
  5. METHOTREXATE [Concomitant]
     Active Substance: METHOTREXATE
     Dosage: 216 G/M2 TOTAL

REACTIONS (3)
  - Refractory anaemia with an excess of blasts [Unknown]
  - Cardiac disorder [Unknown]
  - Deafness [Unknown]
